FAERS Safety Report 21637199 (Version 1)
Quarter: 2022Q4

REPORT INFORMATION
  Report Type: Spontaneous
  Country: US (occurrence: US)
  Receive Date: 20221124
  Receipt Date: 20221124
  Transmission Date: 20230113
  Serious: Yes (Other)
  Sender: FDA-Public Use
  Company Number: US-HALEON-USCH2022043645

PATIENT

DRUGS (1)
  1. DIETARY SUPPLEMENT [Suspect]
     Active Substance: DIETARY SUPPLEMENT
     Indication: Product used for unknown indication
     Dosage: UNK
     Dates: start: 202210

REACTIONS (6)
  - Haematochezia [Unknown]
  - Tooth fracture [Unknown]
  - Tongue injury [Unknown]
  - Pain in jaw [Unknown]
  - Hypoaesthesia [Unknown]
  - Product complaint [Unknown]

NARRATIVE: CASE EVENT DATE: 20221110
